FAERS Safety Report 24445672 (Version 1)
Quarter: 2024Q4

REPORT INFORMATION
  Report Type: Spontaneous
  Country: US (occurrence: US)
  Receive Date: 20241016
  Receipt Date: 20241016
  Transmission Date: 20250114
  Serious: No
  Sender: PFIZER
  Company Number: US-PFIZER INC-202400277050

PATIENT
  Age: 46 Year
  Sex: Female

DRUGS (2)
  1. VELSIPITY [Suspect]
     Active Substance: ETRASIMOD ARGININE
     Dosage: 2 MG, DAILY
     Route: 048
     Dates: start: 202404
  2. UCERIS [Concomitant]
     Active Substance: BUDESONIDE
     Dosage: UNK

REACTIONS (6)
  - Therapeutic product effect delayed [Unknown]
  - Constipation [Unknown]
  - Hormone level abnormal [Unknown]
  - Faeces soft [Unknown]
  - Nausea [Unknown]
  - Retching [Unknown]

NARRATIVE: CASE EVENT DATE: 20240101
